FAERS Safety Report 8914086 (Version 1)
Quarter: 2012Q4

REPORT INFORMATION
  Report Type: Spontaneous
  Country: US (occurrence: None)
  Receive Date: 20121115
  Receipt Date: 20121115
  Transmission Date: 20130627
  Serious: Yes (Other)
  Sender: FDA-Public Use
  Company Number: None

PATIENT
  Age: 48 Year
  Sex: Female
  Weight: 64.86 kg

DRUGS (1)
  1. DUEXIS [Suspect]
     Indication: PULLED MUSCLE
     Dates: start: 20121109, end: 20121110

REACTIONS (4)
  - Vomiting [None]
  - Nausea [None]
  - Hyperhidrosis [None]
  - Diarrhoea haemorrhagic [None]
